FAERS Safety Report 7850881-4 (Version None)
Quarter: 2011Q4

REPORT INFORMATION
  Report Type: 
  Country: None (occurrence: None)
  Receive Date: 20111024
  Receipt Date: 20111010
  Transmission Date: 20120403
  Serious: Yes (Other)
  Sender: FDA-Public Use
  Company Number: AXC-2011-000034

PATIENT
  Age: 70 Year
  Sex: Female
  Weight: 65 kg

DRUGS (1)
  1. URSODIOL [Suspect]
     Indication: BILIARY CIRRHOSIS PRIMARY
     Dosage: 500 MG. BID. ORAL
     Route: 048
     Dates: start: 19890101

REACTIONS (6)
  - ANTIMITOCHONDRIAL ANTIBODY POSITIVE [None]
  - PORTAL HYPERTENSION [None]
  - CHOLESTASIS [None]
  - BILIARY CIRRHOSIS [None]
  - DISEASE PROGRESSION [None]
  - TREATMENT FAILURE [None]
